FAERS Safety Report 24361882 (Version 1)
Quarter: 2024Q3

REPORT INFORMATION
  Report Type: Spontaneous
  Country: BE (occurrence: BE)
  Receive Date: 20240925
  Receipt Date: 20240925
  Transmission Date: 20241017
  Serious: Yes (Other)
  Sender: STRIDES
  Company Number: None

PATIENT
  Age: 9 Year
  Sex: Male

DRUGS (4)
  1. HYDROCORTISONE [Suspect]
     Active Substance: HYDROCORTISONE\HYDROCORTISONE ACETATE
     Indication: Exposure to communicable disease
     Dosage: HYDROCORTISONE 1% WAS APPLIED OVER HIS ENTIRE BODY FOR SEVERAL WEEKS
     Route: 061
  2. HYDROCORTISONE [Suspect]
     Active Substance: HYDROCORTISONE\HYDROCORTISONE ACETATE
     Indication: Skin reaction
  3. FLUTICASONE [Suspect]
     Active Substance: FLUTICASONE
     Indication: Eosinophilic colitis
     Dosage: 50 MCG, PUFFS 2 ? 2
  4. SERETIDE [Suspect]
     Active Substance: FLUTICASONE PROPIONATE\SALMETEROL XINAFOATE
     Indication: Eosinophilic colitis
     Dosage: PUFF SALMETEROL 25 ?G/FLUTICASONE 125 ?G TWICE DAILY

REACTIONS (2)
  - Adrenal insufficiency [Recovered/Resolved]
  - Growth retardation [Recovered/Resolved]
